FAERS Safety Report 8076860-2 (Version None)
Quarter: 2012Q1

REPORT INFORMATION
  Report Type: 
  Country: None (occurrence: None)
  Receive Date: 20120127
  Receipt Date: 20120125
  Transmission Date: 20120608
  Serious: Yes (Death, Hospitalization, Disabling, Other)
  Sender: FDA-Public Use
  Company Number: US-MERCK-0905USA01408

PATIENT
  Age: 71 Year
  Sex: Female
  Weight: 44 kg

DRUGS (2)
  1. FOSAMAX [Suspect]
     Indication: OSTEOPOROSIS
     Route: 048
     Dates: start: 19970101, end: 20070701
  2. HYDROCHLOROTHIAZIDE [Concomitant]
     Route: 065
     Dates: start: 20030101, end: 20070601

REACTIONS (31)
  - ANEURYSM [None]
  - HIP FRACTURE [None]
  - TOOTH INFECTION [None]
  - ANXIETY [None]
  - HYPONATRAEMIA [None]
  - HYPOKALAEMIA [None]
  - HYPERTENSIVE HEART DISEASE [None]
  - FUNGAL SKIN INFECTION [None]
  - ORAL INFECTION [None]
  - IMPAIRED HEALING [None]
  - FALL [None]
  - CHEILITIS [None]
  - BONE LOSS [None]
  - ASTHENIA [None]
  - LIP NEOPLASM MALIGNANT STAGE UNSPECIFIED [None]
  - TOOTH LOSS [None]
  - LICHEN PLANUS [None]
  - CHRONIC OBSTRUCTIVE PULMONARY DISEASE [None]
  - DEHYDRATION [None]
  - ORAL PAIN [None]
  - TOOTH DISORDER [None]
  - JAW DISORDER [None]
  - OROANTRAL FISTULA [None]
  - ORAL DISORDER [None]
  - OSTEONECROSIS OF JAW [None]
  - CEREBROVASCULAR ACCIDENT [None]
  - LOWER LIMB FRACTURE [None]
  - OSTEOARTHRITIS [None]
  - TOOTH FRACTURE [None]
  - ADVERSE DRUG REACTION [None]
  - FATIGUE [None]
